FAERS Safety Report 21892602 (Version 8)
Quarter: 2023Q1

REPORT INFORMATION
  Report Type: Report from Study
  Country: IT (occurrence: None)
  Receive Date: 20230120
  Receipt Date: 20230331
  Transmission Date: 20230418
  Serious: Yes (Life-Threatening, Hospitalization)
  Sender: FDA-Public Use
  Company Number: IT-Eisai Medical Research-EC-2023-132413

PATIENT
  Age: 57 Year
  Sex: Male
  Weight: 75 kg

DRUGS (10)
  1. LENVATINIB [Suspect]
     Active Substance: LENVATINIB
     Indication: Clear cell renal cell carcinoma
     Dosage: STARTING DOSE AT 20 MG, FLUCTUATED DOSAGE
     Route: 048
     Dates: start: 20221118, end: 20230102
  2. PEMBROLIZUMAB [Suspect]
     Active Substance: PEMBROLIZUMAB
     Indication: Clear cell renal cell carcinoma
     Route: 041
     Dates: start: 20221118, end: 20221229
  3. VALPROATE SODIUM [Concomitant]
     Active Substance: VALPROATE SODIUM
     Dates: start: 199801
  4. PANTOPRAZOLE [Concomitant]
     Active Substance: PANTOPRAZOLE
     Dates: start: 20221011
  5. RAMIPRIL [Concomitant]
     Active Substance: RAMIPRIL
     Dates: start: 201001
  6. PREGABALIN [Concomitant]
     Active Substance: PREGABALIN
     Dates: start: 20221011
  7. SODIUM CHLORIDE [Concomitant]
     Active Substance: SODIUM CHLORIDE
     Dates: start: 20221221, end: 20221228
  8. DEXAMETHASONE [Concomitant]
     Active Substance: DEXAMETHASONE
     Dates: start: 20221222, end: 20221228
  9. PREDNISONE [Concomitant]
     Active Substance: PREDNISONE
     Dates: start: 20221222, end: 20221222
  10. VALPROIC ACID [Concomitant]
     Active Substance: VALPROIC ACID
     Dates: start: 20221222

REACTIONS (1)
  - Septic shock [Recovered/Resolved]

NARRATIVE: CASE EVENT DATE: 20230105
